FAERS Safety Report 8339696-0 (Version None)
Quarter: 2012Q2

REPORT INFORMATION
  Report Type: 
  Country: None (occurrence: None)
  Receive Date: 20120507
  Receipt Date: 20120425
  Transmission Date: 20120825
  Serious: Yes (Other)
  Sender: FDA-Public Use
  Company Number: GB-BAYER-2012-024676

PATIENT
  Age: 71 Year
  Sex: Female

DRUGS (14)
  1. CIPROFLOXACIN [Suspect]
     Dosage: 600 MG, BID
     Route: 042
     Dates: start: 20120111, end: 20120206
  2. ASPIRIN [Concomitant]
  3. PIPERACILLIN AND TAZOBACTAM [Suspect]
     Dosage: 4.5 G, UNK
     Route: 041
     Dates: start: 20120221, end: 20120222
  4. FERROUS SULFATE TAB [Concomitant]
  5. LANSOPRAZOLE [Concomitant]
  6. NICORANDIL [Concomitant]
  7. TEICOPLANIN [Concomitant]
     Dosage: 800 MG, UNK
     Route: 041
     Dates: start: 20120109, end: 20120110
  8. MAGNESIUM ASPARTATE HYDROCHLORIDE [Suspect]
     Indication: HYPOMAGNESAEMIA
     Dosage: 10 MMOL, UNK
     Route: 048
     Dates: start: 20120113, end: 20120206
  9. BISOPROLOL FUMARATE [Concomitant]
  10. FUROSEMIDE [Concomitant]
  11. CIPROFLOXACIN [Suspect]
     Dosage: 750 MG, BID
     Route: 048
     Dates: start: 20120110, end: 20120211
  12. ATORVASTATIN CALCIUM [Concomitant]
  13. NITROFURANTOIN [Concomitant]
     Indication: URINARY TRACT INFECTION
  14. MAGNESIUM SULFATE [Concomitant]
     Indication: HYPOMAGNESAEMIA
     Dosage: 25 MMOL, UNK
     Route: 041
     Dates: start: 20120107, end: 20120128

REACTIONS (6)
  - PRURITUS [None]
  - RASH MACULO-PAPULAR [None]
  - RASH ERYTHEMATOUS [None]
  - SKIN WARM [None]
  - PARAESTHESIA [None]
  - PRODUCT CONTAMINATION MICROBIAL [None]
